FAERS Safety Report 8928980 (Version 1)
Quarter: 2012Q4

REPORT INFORMATION
  Report Type: 
  Country: US (occurrence: US)
  Receive Date: 20121127
  Receipt Date: 20121127
  Transmission Date: 20130627
  Serious: Yes (Other)
  Sender: FDA-Public Use
  Company Number: US-ELI_LILLY_AND_COMPANY-US201211005697

PATIENT
  Age: 44 Year
  Sex: Female

DRUGS (9)
  1. BYDUREON [Suspect]
     Indication: TYPE 2 DIABETES MELLITUS
     Dosage: 2 mg, weekly (1/W)
     Route: 058
     Dates: start: 20121105
  2. VITAMIN B12 [Concomitant]
     Dosage: 5000 ug, qd
     Route: 045
  3. PAROXETINE [Concomitant]
     Dosage: UNK, qd
     Route: 048
  4. FISH OIL W/VITAMINS NOS [Concomitant]
     Dosage: 1000 mg, qd
     Route: 048
  5. LISINOPRIL [Concomitant]
     Indication: HYPERTENSION
     Dosage: UNK, qd
     Route: 048
  6. CARVEDILOL [Concomitant]
     Indication: HYPERTENSION
     Dosage: UNK, qd
     Route: 048
  7. GLIMEPIRIDE [Concomitant]
     Indication: TYPE 2 DIABETES MELLITUS
     Dosage: UNK, qd
     Route: 048
  8. GLUMETZA [Concomitant]
     Indication: TYPE 2 DIABETES MELLITUS
     Dosage: UNK, qd
     Route: 048
  9. CRESTOR [Concomitant]
     Dosage: UNK, qd
     Route: 048

REACTIONS (8)
  - Hypoaesthesia [Recovered/Resolved]
  - Oedema peripheral [Recovered/Resolved]
  - Skin discolouration [Recovered/Resolved]
  - Poor peripheral circulation [Recovered/Resolved]
  - Lip swelling [Recovered/Resolved]
  - Eye swelling [Recovered/Resolved]
  - Hypersensitivity [Recovered/Resolved]
  - Rash [Recovered/Resolved]
